FAERS Safety Report 8940047 (Version 2)
Quarter: 2013Q1

REPORT INFORMATION
  Report Type: Spontaneous
  Country: US (occurrence: US)
  Receive Date: 20121203
  Receipt Date: 20130206
  Transmission Date: 20140127
  Serious: Yes (Other)
  Sender: FDA-Public Use
  Company Number: US-JNJFOC-20121111362

PATIENT
  Age: 35 None
  Sex: Female
  Weight: 71.22 kg

DRUGS (5)
  1. ORTHO MICRONOR [Suspect]
     Indication: CONTRACEPTION
     Route: 048
     Dates: start: 20120531, end: 20121111
  2. TOPAMAX [Suspect]
     Indication: MIGRAINE
     Route: 065
  3. PRILOSEC [Concomitant]
     Indication: DYSPEPSIA
     Route: 048
     Dates: start: 2011
  4. LOPID [Concomitant]
     Indication: BLOOD CHOLESTEROL
     Route: 048
     Dates: start: 2012
  5. ZYRTEC [Concomitant]
     Indication: MULTIPLE ALLERGIES
     Route: 048

REACTIONS (6)
  - Migraine [Recovered/Resolved]
  - Vaginal haemorrhage [Recovered/Resolved]
  - Pregnancy on oral contraceptive [Unknown]
  - Exposure during pregnancy [Unknown]
  - Abortion spontaneous [Unknown]
  - Abdominal pain [Not Recovered/Not Resolved]
